FAERS Safety Report 14375119 (Version 1)
Quarter: 2018Q1

REPORT INFORMATION
  Report Type: Spontaneous
  Country: DE (occurrence: DE)
  Receive Date: 20180111
  Receipt Date: 20180111
  Transmission Date: 20180509
  Serious: Yes (Hospitalization, Other)
  Sender: FDA-Public Use
  Company Number: DE-TORRENT-00007585

PATIENT
  Age: 39 Year
  Sex: Female

DRUGS (2)
  1. QUETIAPINE. [Suspect]
     Active Substance: QUETIAPINE
     Indication: MENTAL DISORDER
     Dosage: 125 MG, QD
     Route: 048
     Dates: start: 20160119, end: 20160124
  2. ARIPIPRAZOLE. [Suspect]
     Active Substance: ARIPIPRAZOLE
     Indication: MENTAL DISORDER
     Dosage: 5 MG, QD
     Route: 048
     Dates: start: 20160121

REACTIONS (7)
  - Bruxism [Unknown]
  - Product use in unapproved indication [Unknown]
  - Urinary incontinence [Unknown]
  - Treatment noncompliance [Unknown]
  - Dyskinesia [Recovered/Resolved]
  - Pain in jaw [Unknown]
  - Rabbit syndrome [Unknown]

NARRATIVE: CASE EVENT DATE: 20160120
